FAERS Safety Report 13739135 (Version 2)
Quarter: 2018Q2

REPORT INFORMATION
  Report Type: Spontaneous
  Country: US (occurrence: US)
  Receive Date: 20170710
  Receipt Date: 20180627
  Transmission Date: 20180711
  Serious: Yes (Hospitalization, Other)
  Sender: FDA-Public Use
  Company Number: US-SAOL THERAPEUTICS-2017SAO00860

PATIENT
  Sex: Male

DRUGS (2)
  1. BACLOFEN. [Suspect]
     Active Substance: BACLOFEN
     Indication: MUSCLE SPASTICITY
     Dosage: 1510 ?G, \DAY
     Route: 037
  2. BACLOFEN. [Suspect]
     Active Substance: BACLOFEN
     Indication: MUSCLE SPASTICITY
     Dosage: 800 ?G, \DAY
     Route: 037

REACTIONS (8)
  - Drug withdrawal syndrome [Recovered/Resolved]
  - Unresponsive to stimuli [Unknown]
  - Cerebrospinal fluid leakage [Recovered/Resolved]
  - Device leakage [Unknown]
  - Muscle twitching [Recovered/Resolved]
  - Muscle spasms [Not Recovered/Not Resolved]
  - Complication associated with device [Unknown]
  - Irritability [Recovered/Resolved]

NARRATIVE: CASE EVENT DATE: 2011
